FAERS Safety Report 4543435-9 (Version None)
Quarter: 2005Q1

REPORT INFORMATION
  Report Type: 
  Country: None (occurrence: None)
  Receive Date: 20050103
  Receipt Date: 20041222
  Transmission Date: 20050727
  Serious: Yes (Death)
  Sender: FDA-Public Use
  Company Number: CH-MERCK-0412CHE00025

PATIENT
  Age: 70 Year
  Sex: Female

DRUGS (4)
  1. VIOXX [Suspect]
     Indication: RADICULOPATHY
     Route: 048
  2. ASPIRIN [Concomitant]
     Indication: DIZZINESS
     Route: 048
     Dates: start: 19980101, end: 20020909
  3. ASPIRIN [Concomitant]
     Route: 048
     Dates: start: 19980101, end: 20020909
  4. PANTOPRAZOLE SODIUM [Concomitant]
     Indication: GASTROOESOPHAGEAL REFLUX DISEASE
     Route: 048
     Dates: start: 20000703

REACTIONS (3)
  - CARDIAC ARREST [None]
  - CARDIAC FIBRILLATION [None]
  - MYOCARDIAL ISCHAEMIA [None]
